FAERS Safety Report 19180374 (Version 1)
Quarter: 2021Q2

REPORT INFORMATION
  Report Type: Spontaneous
  Country: US (occurrence: US)
  Receive Date: 20210426
  Receipt Date: 20210426
  Transmission Date: 20210717
  Serious: Yes (Other)
  Sender: FDA-Public Use
  Company Number: US-MYLANLABS-2021M1023776

PATIENT
  Age: 61 Year
  Sex: Male

DRUGS (1)
  1. CARVEDILOL MYLAN [Suspect]
     Active Substance: CARVEDILOL
     Indication: HYPERTENSION
     Dosage: UNK
     Route: 065

REACTIONS (2)
  - Peyronie^s disease [Recovered/Resolved]
  - Peripheral coldness [Unknown]
